FAERS Safety Report 19740964 (Version 2)
Quarter: 2021Q3

REPORT INFORMATION
  Report Type: Report from Study
  Country: US (occurrence: US)
  Receive Date: 20210824
  Receipt Date: 20210903
  Transmission Date: 20211014
  Serious: No
  Sender: FDA-Public Use
  Company Number: US-JNJFOC-20210831157

PATIENT
  Age: 76 Year
  Sex: Male
  Weight: 77.1 kg

DRUGS (10)
  1. SPRAVATO [Suspect]
     Active Substance: ESKETAMINE
     Dosage: 1 TOTAL DOSE
     Dates: start: 20210625, end: 20210625
  2. DIAZEPAM. [Concomitant]
     Active Substance: DIAZEPAM
     Indication: GENERALISED ANXIETY DISORDER
     Dates: start: 20180627
  3. MIRTAZAPINE. [Concomitant]
     Active Substance: MIRTAZAPINE
     Indication: MAJOR DEPRESSION
     Dates: start: 20170619
  4. SPRAVATO [Suspect]
     Active Substance: ESKETAMINE
     Dosage: 1 TOTAL DOSE
     Dates: start: 20210701, end: 20210701
  5. NOVOLOG [Concomitant]
     Active Substance: INSULIN ASPART
     Indication: DIABETES MELLITUS
     Dosage: PUMP
     Dates: start: 20161101
  6. SPRAVATO [Suspect]
     Active Substance: ESKETAMINE
     Indication: DEPRESSION
     Dosage: 1 TOTAL DOSE
     Dates: start: 20210622, end: 20210622
  7. SPRAVATO [Suspect]
     Active Substance: ESKETAMINE
     Dosage: 4 TOTAL DOSES
     Dates: start: 20210716, end: 20210805
  8. SPRAVATO [Suspect]
     Active Substance: ESKETAMINE
     Dosage: 3 TOTAL DOSES
     Dates: start: 20210706, end: 20210712
  9. SPRAVATO [Suspect]
     Active Substance: ESKETAMINE
     Dates: start: 20210812, end: 20210812
  10. BUPROPION. [Concomitant]
     Active Substance: BUPROPION
     Indication: MAJOR DEPRESSION
     Dates: start: 20160926

REACTIONS (4)
  - Sedation [Recovered/Resolved]
  - Dissociation [Recovered/Resolved]
  - Micturition urgency [Recovered/Resolved]
  - Bladder pain [Recovered/Resolved]

NARRATIVE: CASE EVENT DATE: 20210812
